FAERS Safety Report 4770650-1 (Version None)
Quarter: 2005Q3

REPORT INFORMATION
  Report Type: 
  Country: None (occurrence: None)
  Receive Date: 20050915
  Receipt Date: 20050525
  Transmission Date: 20060218
  Serious: Yes (Hospitalization, Disabling, Other)
  Sender: FDA-Public Use
  Company Number: US-MERCK-0505USA03104

PATIENT
  Age: 52 Year
  Sex: Male
  Weight: 59 kg

DRUGS (15)
  1. VIOXX [Suspect]
     Indication: BACK PAIN
     Route: 048
     Dates: start: 20000601, end: 20040501
  2. VIOXX [Suspect]
     Route: 048
     Dates: start: 20000601, end: 20040501
  3. VIOXX [Suspect]
     Indication: SCIATICA
     Route: 048
     Dates: start: 20000601, end: 20040501
  4. VIOXX [Suspect]
     Route: 048
     Dates: start: 20000601, end: 20040501
  5. PREVACID [Concomitant]
     Route: 065
  6. LIPITOR [Concomitant]
     Indication: BLOOD CHOLESTEROL INCREASED
     Route: 065
     Dates: start: 20001219
  7. METOPROLOL [Concomitant]
     Indication: HYPERTENSION
     Route: 065
     Dates: start: 20021219
  8. BELLADONNA [Concomitant]
     Route: 065
  9. LOTENSIN [Concomitant]
     Indication: HYPERTENSION
     Route: 065
     Dates: start: 20011211, end: 20020101
  10. COZAAR [Concomitant]
     Indication: CARDIAC DISORDER
     Route: 065
     Dates: start: 20020120
  11. ASPIRIN [Concomitant]
     Indication: CEREBROVASCULAR ACCIDENT PROPHYLAXIS
     Route: 065
     Dates: start: 20001201
  12. PLAVIX [Concomitant]
     Indication: ANTICOAGULANT THERAPY
     Route: 065
     Dates: start: 20001219
  13. SAW PALMETTO [Concomitant]
     Indication: PROSTATISM
     Route: 065
     Dates: start: 20030101, end: 20040101
  14. BRILLIANT GREEN [Concomitant]
     Indication: IMMUNISATION
     Route: 065
     Dates: start: 20010101
  15. XANAX [Concomitant]
     Indication: ANXIETY DISORDER
     Route: 065
     Dates: start: 20011211

REACTIONS (11)
  - ABDOMINAL DISTENSION [None]
  - ANGINA PECTORIS [None]
  - ANXIETY DISORDER [None]
  - ATHEROSCLEROSIS [None]
  - BACK PAIN [None]
  - CORONARY ARTERY DISEASE [None]
  - FLATULENCE [None]
  - MYOCARDIAL INFARCTION [None]
  - SPINAL FUSION SURGERY [None]
  - SPINAL LAMINECTOMY [None]
  - SPINAL ROD INSERTION [None]
